FAERS Safety Report 14615293 (Version 1)
Quarter: 2018Q1

REPORT INFORMATION
  Report Type: Spontaneous
  Country: FR (occurrence: FR)
  Receive Date: 20180308
  Receipt Date: 20180308
  Transmission Date: 20180509
  Serious: Yes (Other)
  Sender: FDA-Public Use
  Company Number: FR-MERCK KGAA-2043354

PATIENT
  Age: 55 Year
  Sex: Female

DRUGS (1)
  1. NOVOTHYROX [Suspect]
     Active Substance: LEVOTHYROXINE SODIUM
     Indication: PRODUCT USED FOR UNKNOWN INDICATION

REACTIONS (15)
  - Pain [None]
  - Social avoidant behaviour [None]
  - Loss of personal independence in daily activities [None]
  - Insomnia [None]
  - Musculoskeletal stiffness [None]
  - Alopecia [None]
  - Fatigue [None]
  - Pain in extremity [None]
  - Headache [None]
  - Mood swings [None]
  - Hyperhidrosis [None]
  - Crying [None]
  - Muscle spasms [None]
  - Loss of libido [None]
  - Alanine aminotransferase increased [None]

NARRATIVE: CASE EVENT DATE: 20170206
